FAERS Safety Report 16535603 (Version 3)
Quarter: 2019Q4

REPORT INFORMATION
  Report Type: Spontaneous
  Country: US (occurrence: US)
  Receive Date: 20190705
  Receipt Date: 20191030
  Transmission Date: 20200122
  Serious: No
  Sender: FDA-Public Use
  Company Number: US-PFIZER INC-2019197190

PATIENT
  Age: 67 Year
  Sex: Female
  Weight: 99.77 kg

DRUGS (18)
  1. FLAVOXATE [Concomitant]
     Active Substance: FLAVOXATE
     Dosage: 100 MG, AS NEEDED THREE TIMES A DAY
  2. VITAMIN D3 [Concomitant]
     Active Substance: CHOLECALCIFEROL
     Dosage: 1000 IU, ONCE A DAY (IN THE MORNING)
  3. METOPROLOL TARTRATE. [Concomitant]
     Active Substance: METOPROLOL TARTRATE
     Dosage: 75 MG, ONCE A DAY (ONE AND A HALF OF 50 MG TABLET AT BEDTIME)
  4. LISINOPRIL. [Concomitant]
     Active Substance: LISINOPRIL
     Dosage: 5 MG, ONCE A DAY (IN THE MORNING)
  5. PREDNISONE. [Concomitant]
     Active Substance: PREDNISONE
     Dosage: UNK, 1X/DAY (ONE TO FIVE 1 MG TABLETS IN THE MORNING)
  6. XELJANZ [Suspect]
     Active Substance: TOFACITINIB CITRATE
     Dosage: 5 MG, DAILY
  7. PREMARIN [Concomitant]
     Active Substance: ESTROGENS, CONJUGATED
     Dosage: 0.9 MG, ONCE A DAY (IN THE MORNING)
  8. VOLTAREN [Concomitant]
     Active Substance: DICLOFENAC SODIUM
     Dosage: UNK, AS NEEDED (FOUR TIMES A DAY AS NEEDED)
  9. XELJANZ [Suspect]
     Active Substance: TOFACITINIB CITRATE
     Indication: RHEUMATOID ARTHRITIS
     Dosage: 10 MG, DAILY
     Dates: start: 20181011
  10. MUPIROCIN. [Concomitant]
     Active Substance: MUPIROCIN
     Dosage: UNK, TWICE A DAY (MORNING AND BEDTIME)
  11. TYLENOL [Concomitant]
     Active Substance: ACETAMINOPHEN
     Dosage: 1000 MG, TWICE A DAY (TWO 500 MG TABLETS IN THE MORNING AND AT BEDTIME)
  12. VITAMIN B12 [Concomitant]
     Active Substance: CYANOCOBALAMIN
     Dosage: 1000 UG, ONCE A DAY (IN THE MORNING)
  13. NAPROXEN. [Concomitant]
     Active Substance: NAPROXEN
     Dosage: 220 MG, TWICE A DAY (MORNING AND BEDTIME)
  14. ZYPREXA [Concomitant]
     Active Substance: OLANZAPINE
     Dosage: 7.5 MG, ONCE A DAY (AT BEDTIME)
  15. ALBUTEROL [SALBUTAMOL] [Concomitant]
     Active Substance: ALBUTEROL
     Dosage: UNK, AS NEEDED
     Route: 055
  16. LEVOTHYROXINE. [Concomitant]
     Active Substance: LEVOTHYROXINE
     Dosage: 75 UG, ONCE A DAY (IN THE MORNING)
  17. BENADRYL [Concomitant]
     Active Substance: DIPHENHYDRAMINE HYDROCHLORIDE
     Dosage: 50 MG, AS NEEDED
  18. FLECAINIDE [Concomitant]
     Active Substance: FLECAINIDE
     Dosage: 100 MG, TWICE A DAY (MORNING AND BEDTIME)

REACTIONS (1)
  - Fungal skin infection [Recovered/Resolved]

NARRATIVE: CASE EVENT DATE: 20190115
